FAERS Safety Report 9641140 (Version 2)
Quarter: 2013Q4

REPORT INFORMATION
  Report Type: Spontaneous
  Country: AU (occurrence: AU)
  Receive Date: 20131023
  Receipt Date: 20131023
  Transmission Date: 20140711
  Serious: Yes (Other)
  Sender: FDA-Public Use
  Company Number: AU-009507513-1110USA01692

PATIENT
  Age: 56 Year
  Sex: Male

DRUGS (3)
  1. JANUMET [Suspect]
     Indication: DIABETES MELLITUS
     Dosage: 50MG/850
     Route: 048
     Dates: start: 20110512, end: 20111012
  2. DIABEX [Concomitant]
     Dates: end: 2011
  3. DIAMICRON [Concomitant]
     Dates: end: 2011

REACTIONS (2)
  - Cardiac failure [Unknown]
  - Asthma [Unknown]
